FAERS Safety Report 4351888-4 (Version None)
Quarter: 2004Q2

REPORT INFORMATION
  Report Type: 
  Country: None (occurrence: None)
  Receive Date: 20040503
  Receipt Date: 20040420
  Transmission Date: 20050107
  Serious: Yes (Other)
  Sender: FDA-Public Use
  Company Number: PHBS2004BR05291

PATIENT
  Age: 30 Year
  Sex: Female
  Weight: 89 kg

DRUGS (1)
  1. VISKEN [Suspect]
     Indication: HYPERTENSION
     Dosage: 5 MG/DAY
     Route: 048

REACTIONS (5)
  - CONFUSIONAL STATE [None]
  - DRUG EXPOSURE DURING PREGNANCY [None]
  - EYE IRRITATION [None]
  - HEADACHE [None]
  - INSOMNIA [None]
